FAERS Safety Report 10258896 (Version 1)
Quarter: 2014Q2

REPORT INFORMATION
  Report Type: Spontaneous
  Country: US (occurrence: US)
  Receive Date: 20140625
  Receipt Date: 20140625
  Transmission Date: 20141212
  Serious: No
  Sender: FDA-Public Use
  Company Number: US-ASTELLAS-2013US008680

PATIENT
  Sex: Female

DRUGS (8)
  1. VESICARE [Suspect]
     Indication: URGE INCONTINENCE
     Route: 048
     Dates: end: 201307
  2. VESICARE [Suspect]
     Indication: POLLAKIURIA
  3. LEVOTHYROXINE [Concomitant]
     Indication: THYROID DISORDER
     Route: 048
  4. METFORMIN [Concomitant]
     Indication: BLOOD GLUCOSE ABNORMAL
     Route: 048
  5. ASPIRIN [Concomitant]
     Indication: CARDIAC DISORDER
     Route: 048
  6. VASOMOTAL [Concomitant]
     Indication: MENIERE^S DISEASE
     Route: 048
  7. GLUCOSAMINE [Concomitant]
     Indication: ARTHRITIS
     Route: 065
  8. FISH OIL [Concomitant]
     Indication: BLOOD CHOLESTEROL
     Route: 065

REACTIONS (1)
  - Drug ineffective [Unknown]
